FAERS Safety Report 8263098-9 (Version None)
Quarter: 2012Q2

REPORT INFORMATION
  Report Type: 
  Country: None (occurrence: None)
  Receive Date: 20120405
  Receipt Date: 20120328
  Transmission Date: 20120825
  Serious: Yes (Hospitalization)
  Sender: FDA-Public Use
  Company Number: DE-ACTELION-A-US2009-23935

PATIENT

DRUGS (9)
  1. CITALOPRAM HYDROBROMIDE [Concomitant]
  2. PIPERACILLIN AND TAZOBACTAM [Concomitant]
  3. MARCUMAR [Concomitant]
  4. VENTAVIS [Suspect]
     Indication: PULMONARY ARTERIAL HYPERTENSION
     Dosage: 5 UG, 6 X DAY
     Route: 055
     Dates: start: 20080725, end: 20091009
  5. SILDENAFIL [Concomitant]
  6. FLUCONAZOLE [Concomitant]
  7. REVATIO [Concomitant]
     Dosage: UNK
     Dates: start: 20090214
  8. OXYGEN [Concomitant]
  9. CIPROFLOXACIN [Concomitant]

REACTIONS (9)
  - DIARRHOEA [None]
  - CONDITION AGGRAVATED [None]
  - DYSPNOEA [None]
  - PYREXIA [None]
  - LUNG INFECTION PSEUDOMONAL [None]
  - MAJOR DEPRESSION [None]
  - CHRONIC OBSTRUCTIVE PULMONARY DISEASE [None]
  - BRONCHITIS [None]
  - HAEMOPTYSIS [None]
